FAERS Safety Report 6641341-7 (Version None)
Quarter: 2010Q1

REPORT INFORMATION
  Report Type: 
  Country: None (occurrence: None)
  Receive Date: 20100318
  Receipt Date: 20100309
  Transmission Date: 20100710
  Serious: Yes (Other)
  Sender: FDA-Public Use
  Company Number: US-AMGEN-QUU398666

PATIENT
  Sex: Female

DRUGS (2)
  1. ENBREL [Suspect]
     Indication: RHEUMATOID ARTHRITIS
     Route: 058
     Dates: start: 20020615
  2. PLAQUENIL [Concomitant]

REACTIONS (5)
  - FACTOR V DEFICIENCY [None]
  - INDURATION [None]
  - OEDEMA PERIPHERAL [None]
  - PAIN [None]
  - VENOUS INSUFFICIENCY [None]
